FAERS Safety Report 16860171 (Version 1)
Quarter: 2019Q3

REPORT INFORMATION
  Report Type: Report from Study
  Country: US (occurrence: US)
  Receive Date: 20190927
  Receipt Date: 20190927
  Transmission Date: 20191005
  Serious: Yes (Hospitalization)
  Sender: FDA-Public Use
  Company Number: US-TAIHO ONCOLOGY  INC-EU-2019-03148

PATIENT
  Sex: Male

DRUGS (2)
  1. LONSURF [Suspect]
     Active Substance: TIPIRACIL HYDROCHLORIDE\TRIFLURIDINE
     Indication: RECTAL CANCER
     Dosage: CURRENT CYCLE NOT REPORTED. DAYS 1-5 AND 8-12.
     Route: 048
  2. MORPHINE SUL [Concomitant]
     Active Substance: MORPHINE SULFATE

REACTIONS (3)
  - Biliary tract infection [Not Recovered/Not Resolved]
  - Dehydration [Unknown]
  - Bacteraemia [Unknown]
